FAERS Safety Report 5413896-1 (Version None)
Quarter: 2007Q3

REPORT INFORMATION
  Report Type: 
  Country: None (occurrence: None)
  Receive Date: 20070814
  Receipt Date: 20070731
  Transmission Date: 20080115
  Serious: Yes (Hospitalization, Other)
  Sender: FDA-Public Use
  Company Number: US-ELI_LILLY_AND_COMPANY-US200706001750

PATIENT
  Age: 90 Year
  Sex: Female

DRUGS (2)
  1. FORTEO [Suspect]
     Indication: OSTEOPOROSIS
     Dosage: UNK, UNKNOWN
     Dates: start: 20070531, end: 20070607
  2. CALCIUM CHLORIDE [Concomitant]
     Dosage: 600 MG, DAILY (1/D)

REACTIONS (11)
  - CHEST PAIN [None]
  - DIAPHRAGMATIC DISORDER [None]
  - DIARRHOEA [None]
  - DUODENAL ULCER HAEMORRHAGE [None]
  - EATING DISORDER [None]
  - FAECES DISCOLOURED [None]
  - GASTROINTESTINAL DISORDER [None]
  - HAEMATEMESIS [None]
  - NAUSEA [None]
  - SLEEP DISORDER [None]
  - VOMITING [None]
